FAERS Safety Report 5786071-9 (Version None)
Quarter: 2008Q2

REPORT INFORMATION
  Report Type: 
  Country: None (occurrence: None)
  Receive Date: 20080620
  Receipt Date: 20080620
  Transmission Date: 20081010
  Serious: Yes (Hospitalization)
  Sender: FDA-Public Use
  Company Number: None

PATIENT
  Age: 65 Year
  Sex: Female
  Weight: 43.5453 kg

DRUGS (14)
  1. GEMCITABINE [Suspect]
     Indication: HEAD AND NECK CANCER
     Dosage: 1500 MG/M2  EVERY 14 DAYS  IV
     Route: 042
     Dates: start: 20071217, end: 20080603
  2. PEMETREXED [Suspect]
     Indication: HEAD AND NECK CANCER
     Dosage: 500 MG/M2  EVERY 14 DAYS  IV
     Route: 042
     Dates: start: 20071217, end: 20080603
  3. COZAAR [Concomitant]
  4. EVOXAC [Concomitant]
  5. CENTRUM SILVER [Concomitant]
  6. IRON [Concomitant]
  7. METAMUCIL [Concomitant]
  8. LEVOTHYROXINE SODIUM [Concomitant]
  9. DEXAMETHASONE TAB [Concomitant]
  10. FOLIC ACID [Concomitant]
  11. VITAMIN B-12 [Concomitant]
  12. SENNAKOT [Concomitant]
  13. MEDROL [Concomitant]
  14. PROCHLORPERAZINE [Concomitant]

REACTIONS (1)
  - DYSPNOEA [None]
